FAERS Safety Report 15333796 (Version 2)
Quarter: 2018Q3

REPORT INFORMATION
  Report Type: Spontaneous
  Country: US (occurrence: US)
  Receive Date: 20180830
  Receipt Date: 20180914
  Transmission Date: 20181010
  Serious: Yes (Hospitalization)
  Sender: FDA-Public Use
  Company Number: US-BIOGEN-2018BI00626414

PATIENT
  Age: 1 Month
  Sex: Female

DRUGS (1)
  1. SPINRAZA [Suspect]
     Active Substance: NUSINERSEN
     Indication: SPINAL MUSCULAR ATROPHY
     Route: 065
     Dates: start: 20180803, end: 20180817

REACTIONS (2)
  - Respiratory failure [Unknown]
  - Respiratory muscle weakness [Not Recovered/Not Resolved]

NARRATIVE: CASE EVENT DATE: 201808
